FAERS Safety Report 8862131 (Version 2)
Quarter: 2013Q1

REPORT INFORMATION
  Report Type: Spontaneous
  Country: US (occurrence: US)
  Receive Date: 20121026
  Receipt Date: 20130110
  Transmission Date: 20140127
  Serious: Yes (Hospitalization)
  Sender: FDA-Public Use
  Company Number: US-B.I. PHARMACEUTICALS,INC./RIDGEFIELD-2012-BP-26182BP

PATIENT
  Age: 86 None
  Sex: Female
  Weight: 57 kg

DRUGS (15)
  1. SPIRIVA [Suspect]
     Indication: EMPHYSEMA
     Dosage: 18 MCG
     Route: 055
     Dates: start: 201207
  2. SPIRIVA [Suspect]
     Indication: CHRONIC OBSTRUCTIVE PULMONARY DISEASE
  3. LOSARTAN [Concomitant]
     Dosage: 100 MG
     Route: 048
     Dates: start: 2007
  4. ALBUTEROL [Concomitant]
     Indication: PROPHYLAXIS
     Route: 055
     Dates: start: 2009
  5. ALBUTEROL [Concomitant]
     Indication: CHRONIC OBSTRUCTIVE PULMONARY DISEASE
     Dates: start: 201301
  6. IMDUR [Concomitant]
     Indication: HYPERTENSION
     Dosage: 60 MG
     Route: 048
     Dates: start: 201205
  7. POTASSIUM [Concomitant]
     Indication: VITAMIN SUPPLEMENTATION
     Dosage: 20 MEQ
     Route: 048
     Dates: start: 2007
  8. LASIX [Concomitant]
     Indication: FLUID RETENTION
     Dosage: 20 MG
     Route: 048
     Dates: start: 2007
  9. LASIX [Concomitant]
     Indication: DIURETIC THERAPY
     Dosage: 10 MG
     Route: 048
  10. HYDRALAZINE [Concomitant]
     Indication: HYPERTENSION
     Dosage: 150 MG
     Route: 048
     Dates: start: 201208
  11. AMLODIPINE [Concomitant]
     Indication: HYPERTENSION
     Dosage: 5 MG
     Route: 048
     Dates: start: 2007
  12. METOPROLOL [Concomitant]
     Indication: HYPERTENSION
     Dosage: 50 MG
     Route: 048
     Dates: start: 2007
  13. LOSARTAN [Concomitant]
     Indication: HYPERTENSION
     Route: 048
  14. FAMOTIDINE [Concomitant]
     Indication: GASTROOESOPHAGEAL REFLUX DISEASE
     Route: 048
  15. MULTI VITAMIN [Concomitant]
     Route: 048

REACTIONS (16)
  - Hypertension [Recovered/Resolved]
  - Visual acuity reduced [Not Recovered/Not Resolved]
  - Product quality issue [Recovered/Resolved]
  - Dysphonia [Not Recovered/Not Resolved]
  - Sneezing [Not Recovered/Not Resolved]
  - Nasopharyngitis [Not Recovered/Not Resolved]
  - Dyspnoea [Recovered/Resolved]
  - Anxiety [Recovered/Resolved]
  - Chest discomfort [Recovered/Resolved]
  - Drug ineffective [Recovered/Resolved]
  - Product quality issue [Recovered/Resolved]
  - Dyspnoea [Not Recovered/Not Resolved]
  - Tremor [Not Recovered/Not Resolved]
  - Chest discomfort [Not Recovered/Not Resolved]
  - Nervousness [Not Recovered/Not Resolved]
  - Product quality issue [Recovered/Resolved]
